FAERS Safety Report 5758943-2 (Version None)
Quarter: 2008Q2

REPORT INFORMATION
  Report Type: 
  Country: None (occurrence: None)
  Receive Date: 20080604
  Receipt Date: 20080527
  Transmission Date: 20081010
  Serious: Yes (Other)
  Sender: FDA-Public Use
  Company Number: US-BAYER-200811096BCC

PATIENT
  Age: 70 Year
  Sex: Male
  Weight: 98 kg

DRUGS (10)
  1. ASPIRIN [Suspect]
     Indication: CORONARY ARTERY OCCLUSION
     Dosage: TOTAL DAILY DOSE: 81 MG  UNIT DOSE: 81 MG
     Route: 048
     Dates: start: 19960101, end: 20070107
  2. ASPIRIN [Suspect]
     Dosage: TOTAL DAILY DOSE: 81 MG  UNIT DOSE: 81 MG
     Route: 048
     Dates: start: 20070727, end: 20070802
  3. UROXATRAL [Suspect]
     Indication: DYSURIA
     Dosage: TOTAL DAILY DOSE: 10 MG  UNIT DOSE: 10 MG
     Route: 048
     Dates: start: 20050202, end: 20060222
  4. UROXATRAL [Suspect]
     Dosage: TOTAL DAILY DOSE: 20 MG  UNIT DOSE: 10 MG
     Route: 048
     Dates: start: 20060609, end: 20060728
  5. NORVASC [Concomitant]
  6. LIPITOR [Concomitant]
  7. OMEPRAZOLE [Concomitant]
  8. DICLOFENAC SODIUM [Concomitant]
  9. VITAMIN E [Concomitant]
  10. PRIMOSE AND GREEN TEA EXTRACT [Concomitant]

REACTIONS (2)
  - HAEMATOSPERMIA [None]
  - PROSTATITIS [None]
